FAERS Safety Report 5645841-8 (Version None)
Quarter: 2008Q1

REPORT INFORMATION
  Report Type: 
  Country: None (occurrence: None)
  Receive Date: 20080229
  Receipt Date: 20080222
  Transmission Date: 20080703
  Serious: Yes (Hospitalization)
  Sender: FDA-Public Use
  Company Number: US-ABBOTT-08P-163-0439515-00

PATIENT
  Sex: Female
  Weight: 52.21 kg

DRUGS (14)
  1. HUMIRA [Suspect]
     Indication: RHEUMATOID ARTHRITIS
     Route: 058
     Dates: start: 20070201, end: 20071001
  2. HUMIRA [Suspect]
     Dosage: HUMIRA PEN THERAPY HELD
     Route: 058
     Dates: start: 20071001, end: 20080114
  3. LEVOTHYROXINE SODIUM [Concomitant]
     Indication: HYPOTHYROIDISM
     Route: 048
  4. CADUET [Concomitant]
     Indication: BLOOD CHOLESTEROL INCREASED
     Route: 048
  5. LISINOPRIL [Concomitant]
     Indication: BLOOD PRESSURE
     Route: 048
  6. METOPROLOL TARTRATE [Concomitant]
     Indication: BLOOD PRESSURE
     Route: 048
  7. MESALAMINE [Concomitant]
     Indication: COLITIS
     Route: 048
  8. BISMUTH SUBSALICYLATE [Concomitant]
     Indication: DIARRHOEA
     Route: 048
  9. IMODIUM [Concomitant]
     Indication: DIARRHOEA
     Route: 048
  10. ARAVE [Concomitant]
     Indication: RHEUMATOID ARTHRITIS
     Route: 048
  11. PAROXETINE HCL [Concomitant]
     Indication: DEPRESSION
     Route: 048
  12. TEMAZEPAM [Concomitant]
     Indication: SLEEP DISORDER THERAPY
     Route: 048
  13. FAMOTIDINE [Concomitant]
     Indication: GASTRIC DISORDER
     Route: 048
  14. LOMOTIL [Concomitant]
     Indication: DIARRHOEA
     Route: 048

REACTIONS (6)
  - COLITIS COLLAGENOUS [None]
  - DEHYDRATION [None]
  - DIARRHOEA [None]
  - FOOT FRACTURE [None]
  - INAPPROPRIATE SCHEDULE OF DRUG ADMINISTRATION [None]
  - WOUND INFECTION [None]
